FAERS Safety Report 5556873-2 (Version None)
Quarter: 2007Q4

REPORT INFORMATION
  Report Type: 
  Country: None (occurrence: None)
  Receive Date: 20071214
  Receipt Date: 20071205
  Transmission Date: 20080405
  Serious: Yes (Hospitalization, Other)
  Sender: FDA-Public Use
  Company Number: PHHY2007JP00786

PATIENT
  Age: 29 Year
  Sex: Male
  Weight: 74 kg

DRUGS (30)
  1. GLEEVEC [Suspect]
     Indication: ACUTE LYMPHOCYTIC LEUKAEMIA
     Dosage: 400 MG/ DAY
     Route: 048
     Dates: start: 20070216, end: 20070301
  2. GLEEVEC [Suspect]
     Dosage: 600 MG/DAY
     Route: 048
     Dates: start: 20070302
  3. ONCOVIN [Concomitant]
     Dosage: 2 MG, UNK
     Route: 048
     Dates: start: 20070221, end: 20070307
  4. PREDONINE [Concomitant]
     Dosage: 100 MG, UNK
     Route: 048
  5. PREDONINE [Concomitant]
     Dosage: 80 MG, UNK
     Route: 048
  6. PREDONINE [Concomitant]
     Dosage: 60 MG, UNK
     Route: 048
  7. PREDONINE [Concomitant]
     Dosage: 40 MG, UNK
     Route: 048
  8. PREDONINE [Concomitant]
     Dosage: 20 MG, UNK
     Route: 048
  9. PREDONINE [Concomitant]
     Dosage: 10 MG, UNK
     Route: 048
     Dates: end: 20070314
  10. CYLOCIDE [Concomitant]
     Dosage: 7.2 G
     Route: 048
     Dates: start: 20070317, end: 20070319
  11. LASTET [Concomitant]
     Dosage: 150 MG
     Route: 048
     Dates: start: 20070317, end: 20070319
  12. DECADRON [Concomitant]
     Dosage: 40 MG
     Route: 048
     Dates: start: 20070317
  13. DECADRON [Concomitant]
     Dosage: 8 MG
  14. DECADRON [Concomitant]
     Dosage: 8 MG
     Dates: end: 20070427
  15. METHOTREXATE [Concomitant]
     Dosage: 15 MG
     Dates: start: 20070316, end: 20070427
  16. MUCOSTA [Concomitant]
     Dosage: 300 MG
     Route: 048
     Dates: start: 20070210
  17. ALLOPURINOL [Concomitant]
     Dosage: 300 MG
     Route: 048
     Dates: start: 20070210
  18. ALLOPURINOL [Concomitant]
     Dosage: 200 MG
     Route: 048
  19. ALLOPURINOL [Concomitant]
     Dosage: 100 MG
     Route: 048
     Dates: end: 20070223
  20. ACINON [Concomitant]
     Dosage: 150 MG
     Route: 048
     Dates: start: 20070210
  21. ITRIZOLE [Concomitant]
     Dosage: 100 MG
     Route: 048
     Dates: start: 20070210
  22. ORGARAN [Concomitant]
     Dosage: 2 ML
     Dates: start: 20070210, end: 20070219
  23. NASEA [Concomitant]
     Dosage: 0.6 ML
     Dates: start: 20070214, end: 20070220
  24. POLYMYXIN B [Concomitant]
     Dosage: 300 DOSAGE FORM
     Route: 048
     Dates: start: 20070210, end: 20070405
  25. GRAN [Concomitant]
     Dosage: 300 MG
     Route: 048
     Dates: start: 20070222
  26. GRAN [Concomitant]
     Dosage: 300 MG
     Route: 048
     Dates: end: 20070329
  27. SULPERAZON [Concomitant]
     Dosage: 4 G, UNK
     Route: 042
     Dates: start: 20070326, end: 20070329
  28. OMEGACIN [Concomitant]
     Dosage: 1.2 DOSAGE FORM
     Route: 042
     Dates: start: 20070329, end: 20070409
  29. AZACTAM [Concomitant]
     Dosage: 2 G, UNK
     Route: 042
     Dates: start: 20070329, end: 20070410
  30. AMIKACIN SULFATE [Concomitant]
     Dosage: 200 G, UNK
     Route: 042
     Dates: start: 20070410, end: 20070414

REACTIONS (2)
  - HOSPITALISATION [None]
  - SKIN ULCER [None]
